FAERS Safety Report 7001210-X (Version None)
Quarter: 2010Q3

REPORT INFORMATION
  Report Type: 
  Country: None (occurrence: None)
  Receive Date: 20100920
  Receipt Date: 20071212
  Transmission Date: 20110219
  Serious: Yes (Other)
  Sender: FDA-Public Use
  Company Number: US-ASTRAZENECA-2006UW03811

PATIENT
  Age: 555 Month
  Sex: Male
  Weight: 118.4 kg

DRUGS (7)
  1. SEROQUEL [Suspect]
     Route: 048
     Dates: start: 20011101, end: 20050301
  2. SEROQUEL [Suspect]
     Dosage: 25MG-100MG
     Route: 048
     Dates: start: 20020726
  3. LORAZEPAM [Concomitant]
     Dates: start: 20011018
  4. HALDOL [Concomitant]
     Dosage: 2MG-5MG
     Dates: start: 19980613
  5. BENZTROPINE MESYLATE [Concomitant]
     Dosage: 1MG-2MG
     Dates: start: 20011128
  6. ZOLOFT [Concomitant]
     Dates: start: 19980613
  7. RISPERDAL [Concomitant]
     Dates: start: 20020621

REACTIONS (3)
  - DIABETES MELLITUS [None]
  - PANCREATITIS [None]
  - TYPE 2 DIABETES MELLITUS [None]
